FAERS Safety Report 4718739-7 (Version None)
Quarter: 2005Q3

REPORT INFORMATION
  Report Type: 
  Country: None (occurrence: None)
  Receive Date: 20050719
  Receipt Date: 20050701
  Transmission Date: 20060218
  Serious: Yes (Hospitalization)
  Sender: FDA-Public Use
  Company Number: 216100

PATIENT
  Age: 38 Year
  Sex: Male

DRUGS (3)
  1. AVASTIN [Suspect]
     Indication: KAPOSI'S SARCOMA
     Dosage: 15 MG/KG, 2/MONTH, INTRAVENOUS
     Route: 042
     Dates: start: 20030409
  2. BACTRIM DS [Concomitant]
  3. COMBIVIR [Concomitant]

REACTIONS (9)
  - BLOOD AMYLASE INCREASED [None]
  - BLOOD PHOSPHORUS DECREASED [None]
  - BODY TEMPERATURE INCREASED [None]
  - CELLULITIS [None]
  - DYSPNOEA [None]
  - LIPASE INCREASED [None]
  - PAIN IN EXTREMITY [None]
  - PROTEINURIA [None]
  - WHITE BLOOD CELL COUNT INCREASED [None]
